FAERS Safety Report 17158182 (Version 1)
Quarter: 2019Q4

REPORT INFORMATION
  Report Type: Report from Study
  Country: IT (occurrence: IT)
  Receive Date: 20191216
  Receipt Date: 20191216
  Transmission Date: 20200122
  Serious: Yes (Other)
  Sender: FDA-Public Use
  Company Number: IT-MYLANLABS-2019M1120196

PATIENT
  Age: 46 Year
  Sex: Male

DRUGS (1)
  1. KETOPROFEN. [Suspect]
     Active Substance: KETOPROFEN
     Indication: TOOTHACHE
     Dosage: 240 MILLIGRAM, QD
     Route: 048
     Dates: start: 20190412, end: 20190512

REACTIONS (6)
  - Drug abuse [Unknown]
  - Anaemia [Recovering/Resolving]
  - Vomiting [Recovering/Resolving]
  - Haemorrhage [Recovering/Resolving]
  - Melaena [Recovering/Resolving]
  - Intentional product misuse [Unknown]

NARRATIVE: CASE EVENT DATE: 20190512
